FAERS Safety Report 25226440 (Version 3)
Quarter: 2025Q2

REPORT INFORMATION
  Report Type: Spontaneous
  Country: LV (occurrence: LV)
  Receive Date: 20250422
  Receipt Date: 20250515
  Transmission Date: 20250717
  Serious: Yes (Death, Life-Threatening, Hospitalization, Other)
  Sender: JAZZ
  Company Number: LV-JAZZ PHARMACEUTICALS-2025-LV-010095

PATIENT

DRUGS (1)
  1. VYXEOS [Suspect]
     Active Substance: CYTARABINE\DAUNORUBICIN
     Indication: Acute myeloid leukaemia

REACTIONS (6)
  - Cerebral haemorrhage [Fatal]
  - Pancytopenia [Fatal]
  - Pneumonia [Unknown]
  - Sepsis [Unknown]
  - Septic shock [Unknown]
  - Acute respiratory distress syndrome [Unknown]
